FAERS Safety Report 6207280-0 (Version None)
Quarter: 2009Q2

REPORT INFORMATION
  Report Type: 
  Country: None (occurrence: None)
  Receive Date: 20090521
  Receipt Date: 20090521
  Transmission Date: 20091009
  Serious: No
  Sender: FDA-Public Use
  Company Number: None

PATIENT
  Age: 69 Year

DRUGS (1)
  1. DIGOXIN [Suspect]
     Dosage: PILL NO 6783402

REACTIONS (3)
  - ABASIA [None]
  - APHASIA [None]
  - POSTURE ABNORMAL [None]
